FAERS Safety Report 19294697 (Version 1)
Quarter: 2021Q2

REPORT INFORMATION
  Report Type: Spontaneous
  Country: US (occurrence: US)
  Receive Date: 20210524
  Receipt Date: 20210524
  Transmission Date: 20210717
  Serious: No
  Sender: FDA-Public Use
  Company Number: None

PATIENT
  Age: 65 Year
  Sex: Male
  Weight: 98.1 kg

DRUGS (1)
  1. TADALAFIL. [Suspect]
     Active Substance: TADALAFIL
     Indication: PROSTATECTOMY
     Dosage: ?          QUANTITY:1 TABLET(S);?
     Route: 048
     Dates: start: 20210523

REACTIONS (5)
  - Arthralgia [None]
  - Neck pain [None]
  - Vision blurred [None]
  - Back pain [None]
  - Headache [None]

NARRATIVE: CASE EVENT DATE: 20210524
